FAERS Safety Report 17488516 (Version 1)
Quarter: 2020Q1

REPORT INFORMATION
  Report Type: Spontaneous
  Country: US (occurrence: US)
  Receive Date: 20200220
  Receipt Date: 20200220
  Transmission Date: 20200409
  Serious: Yes (Disabling)
  Sender: FDA-Public Use
  Company Number: None

PATIENT
  Age: 70 Year
  Sex: Female
  Weight: 61.69 kg

DRUGS (9)
  1. PANTANOL [Concomitant]
  2. VICODIN [Concomitant]
     Active Substance: ACETAMINOPHEN\HYDROCODONE BITARTRATE
  3. RANITIDINE. [Suspect]
     Active Substance: RANITIDINE
     Indication: DYSPEPSIA
     Dosage: ?          QUANTITY:1 DF DOSAGE FORM;?
     Route: 048
     Dates: start: 2017, end: 20191004
  4. DIAZAPAM [Concomitant]
     Active Substance: DIAZEPAM
  5. RANITIDINE. [Suspect]
     Active Substance: RANITIDINE
     Indication: GASTRIC ULCER
     Dosage: ?          QUANTITY:1 DF DOSAGE FORM;?
     Route: 048
     Dates: start: 2017, end: 20191004
  6. POTASSIUM [Concomitant]
     Active Substance: POTASSIUM
  7. NAMENDA [Concomitant]
     Active Substance: MEMANTINE HYDROCHLORIDE
  8. BENADRYL ALLERGY + DECONGESTANT [Concomitant]
  9. LEVOXYL [Concomitant]
     Active Substance: LEVOTHYROXINE SODIUM

REACTIONS (5)
  - Diarrhoea [None]
  - Recalled product administered [None]
  - Abdominal discomfort [None]
  - Decreased appetite [None]
  - Dyspepsia [None]

NARRATIVE: CASE EVENT DATE: 2017
